FAERS Safety Report 14028135 (Version 1)
Quarter: 2017Q4

REPORT INFORMATION
  Report Type: Spontaneous
  Country: CA (occurrence: CA)
  Receive Date: 20171002
  Receipt Date: 20171002
  Transmission Date: 20180321
  Serious: Yes (Death, Other)
  Sender: FDA-Public Use
  Company Number: CA-ACCORD-059347

PATIENT
  Age: 53 Year
  Sex: Male
  Weight: 68.7 kg

DRUGS (11)
  1. RANITIDINE. [Concomitant]
     Active Substance: RANITIDINE
     Route: 048
  2. TINZAPARIN/TINZAPARIN SODIUM [Concomitant]
     Route: 058
  3. FLUOROURACIL ACCORD [Suspect]
     Active Substance: FLUOROURACIL
     Indication: CHEMOTHERAPY
     Dosage: 750 MG BOLUS/4425 MG INFUSION
     Dates: start: 20170816
  4. CLOXACILLIN [Concomitant]
     Active Substance: CLOXACILLIN
     Route: 042
  5. DEXAMETHASONE. [Concomitant]
     Active Substance: DEXAMETHASONE
  6. AMLODIPINE [Concomitant]
     Active Substance: AMLODIPINE BESYLATE
     Route: 048
  7. KEPPRA [Concomitant]
     Active Substance: LEVETIRACETAM
     Route: 048
  8. CEFTRIAXONE. [Concomitant]
     Active Substance: CEFTRIAXONE
     Route: 042
  9. OXALIPLATIN HOSPIRA [Suspect]
     Active Substance: OXALIPLATIN
     Indication: CHEMOTHERAPY
     Dates: start: 20170816
  10. ONDANSETRON [Concomitant]
     Active Substance: ONDANSETRON
     Route: 048
  11. FOLINIC ACID [Concomitant]
     Active Substance: LEUCOVORIN
     Route: 042

REACTIONS (4)
  - Ventricular fibrillation [Fatal]
  - Cardiac arrest [Fatal]
  - Pain [Unknown]
  - Hypoaesthesia [Unknown]

NARRATIVE: CASE EVENT DATE: 20170816
